FAERS Safety Report 6516753-2 (Version None)
Quarter: 2009Q4

REPORT INFORMATION
  Report Type: 
  Country: None (occurrence: None)
  Receive Date: 20091223
  Receipt Date: 20091216
  Transmission Date: 20100525
  Serious: Yes (Hospitalization)
  Sender: FDA-Public Use
  Company Number: US-JNJFOC-20090906198

PATIENT
  Sex: Male
  Weight: 43 kg

DRUGS (19)
  1. INFLIXIMAB [Suspect]
     Route: 042
  2. INFLIXIMAB [Suspect]
     Route: 042
  3. INFLIXIMAB [Suspect]
     Route: 042
  4. INFLIXIMAB [Suspect]
     Route: 042
  5. INFLIXIMAB [Suspect]
     Indication: CROHN'S DISEASE
     Route: 042
  6. PREDNISONE [Concomitant]
  7. METHOTREXATE [Concomitant]
  8. ANTIHISTAMINES [Concomitant]
     Indication: PREMEDICATION
  9. METRONIDAZOLE [Concomitant]
  10. BALSALAZIDE [Concomitant]
  11. ESOMEPRAZOLE MAGNESIUM [Concomitant]
  12. RISPERDAL [Concomitant]
  13. ERGOCALCIFEROL [Concomitant]
  14. FERROUS SULFATE TAB [Concomitant]
  15. LISINOPRIL [Concomitant]
  16. ACETAMINOPHEN [Concomitant]
     Indication: PREMEDICATION
  17. CALCIUM CARBONATE [Concomitant]
  18. METHYLPHENIDATE HCL [Concomitant]
  19. 5ASA [Concomitant]
     Route: 048

REACTIONS (1)
  - CROHN'S DISEASE [None]
